FAERS Safety Report 17380121 (Version 1)
Quarter: 2020Q1

REPORT INFORMATION
  Report Type: Report from Study
  Country: EG (occurrence: EG)
  Receive Date: 20200206
  Receipt Date: 20200206
  Transmission Date: 20200409
  Serious: Yes (Other)
  Sender: FDA-Public Use
  Company Number: NVSC2020EG031057

PATIENT
  Age: 65 Year
  Sex: Male

DRUGS (6)
  1. GLIVEC [Suspect]
     Active Substance: IMATINIB MESYLATE
     Indication: CHRONIC MYELOID LEUKAEMIA
     Dosage: 2 DF, BID (STARTED 8 YEARS AGO)
     Route: 048
  2. SPRYCEL [Suspect]
     Active Substance: DASATINIB
     Indication: CHRONIC MYELOID LEUKAEMIA
     Dosage: 1 DF, QD (STARTED 2 YEASRS AGO)
     Route: 048
  3. TASIGNA [Suspect]
     Active Substance: NILOTINIB
     Indication: CHRONIC MYELOID LEUKAEMIA
     Dosage: 4 DF, QD STARTED 8 YEARS AGO) (STOPPED 2 YEARS AGO)
     Route: 048
  4. OLAPEX [Concomitant]
     Indication: SCHIZOPHRENIA
     Dosage: 2 DF, QHS (STARTED 6 YEARS AGO)
     Route: 065
  5. GLIVEC [Suspect]
     Active Substance: IMATINIB MESYLATE
     Dosage: 4 DF, QD (STARTED 15 DAYS AFTER STARTING SPRYCEL)
     Route: 048
  6. OLAPEX [Concomitant]
     Indication: SLEEP DISORDER

REACTIONS (6)
  - Cytogenetic analysis abnormal [Recovered/Resolved]
  - Platelet count decreased [Recovering/Resolving]
  - Fatigue [Recovered/Resolved]
  - White blood cell count increased [Recovered/Resolved]
  - Movement disorder [Recovered/Resolved]
  - Hypersensitivity [Recovering/Resolving]

NARRATIVE: CASE EVENT DATE: 2012
